FAERS Safety Report 15362781 (Version 1)
Quarter: 2018Q3

REPORT INFORMATION
  Report Type: Spontaneous
  Country: US (occurrence: US)
  Receive Date: 20180907
  Receipt Date: 20180907
  Transmission Date: 20181010
  Serious: Yes (Other)
  Sender: FDA-Public Use
  Company Number: US-BAYER-2018-164876

PATIENT
  Age: 76 Year
  Sex: Male

DRUGS (2)
  1. BAYER ASPIRIN [Suspect]
     Active Substance: ASPIRIN
     Indication: PRODUCT USED FOR UNKNOWN INDICATION
     Dosage: UNK
     Route: 065
  2. HUMIRA [Suspect]
     Active Substance: ADALIMUMAB
     Indication: PSORIASIS
     Dosage: 40 MG, UNK
     Route: 058
     Dates: start: 201703

REACTIONS (9)
  - Macular degeneration [Unknown]
  - Psoriasis [Recovered/Resolved]
  - Psoriasis [Unknown]
  - Blindness [Not Recovered/Not Resolved]
  - Gastrointestinal motility disorder [Unknown]
  - Skin atrophy [Not Recovered/Not Resolved]
  - Dyspepsia [Unknown]
  - Haemorrhagic diathesis [Not Recovered/Not Resolved]
  - Pneumonia [Unknown]

NARRATIVE: CASE EVENT DATE: 2017
